FAERS Safety Report 25940516 (Version 5)
Quarter: 2025Q4

REPORT INFORMATION
  Report Type: Spontaneous
  Country: EU (occurrence: EU)
  Receive Date: 20251020
  Receipt Date: 20251203
  Transmission Date: 20260118
  Serious: Yes (Other)
  Sender: NOVARTIS
  Company Number: EU-002147023-NVSC2025PL157403

PATIENT
  Age: 71 Year
  Sex: Female

DRUGS (4)
  1. CARBAMAZEPINE [Interacting]
     Active Substance: CARBAMAZEPINE
     Indication: Trigeminal neuralgia
     Dosage: 200 MG, BID (2X200MG)
     Route: 065
  2. ACETAMINOPHEN\TRAMADOL [Interacting]
     Active Substance: ACETAMINOPHEN\TRAMADOL
     Indication: Trigeminal neuralgia
     Dosage: 1 DOSAGE FORM, TID (3X1)
     Route: 065
  3. ACETAMINOPHEN\TRAMADOL [Interacting]
     Active Substance: ACETAMINOPHEN\TRAMADOL
     Dosage: 725 MG (75 MG TRAMADOL + 650 MG PARACETAMOL)
     Route: 065
  4. ACETAMINOPHEN\TRAMADOL [Interacting]
     Active Substance: ACETAMINOPHEN\TRAMADOL
     Dosage: 1 DOSAGE FORM, TID (650/75 MG)
     Route: 065

REACTIONS (2)
  - Seizure [Unknown]
  - Drug interaction [Unknown]
